FAERS Safety Report 16583343 (Version 4)
Quarter: 2019Q4

REPORT INFORMATION
  Report Type: Report from Study
  Country: None (occurrence: US)
  Receive Date: 20190717
  Receipt Date: 20191009
  Transmission Date: 20200122
  Serious: Yes (Other)
  Sender: FDA-Public Use
  Company Number: US-ABBVIE-19K-163-2852044-00

PATIENT
  Age: 74 Year
  Sex: Female

DRUGS (1)
  1. HUMIRA [Suspect]
     Active Substance: ADALIMUMAB
     Indication: CROHN^S DISEASE
     Route: 058

REACTIONS (10)
  - Foot deformity [Recovering/Resolving]
  - Rash papular [Recovering/Resolving]
  - Gait inability [Unknown]
  - Joint injury [Unknown]
  - Drug ineffective [Recovering/Resolving]
  - Tendon disorder [Recovering/Resolving]
  - Dry eye [Unknown]
  - Tendon rupture [Unknown]
  - Eye inflammation [Unknown]
  - Ocular hyperaemia [Unknown]

NARRATIVE: CASE EVENT DATE: 2018
